FAERS Safety Report 14293444 (Version 2)
Quarter: 2017Q4

REPORT INFORMATION
  Report Type: Spontaneous
  Country: US (occurrence: US)
  Receive Date: 20171215
  Receipt Date: 20171222
  Transmission Date: 20180321
  Serious: No
  Sender: FDA-Public Use
  Company Number: PHEH2017US040602

PATIENT
  Age: 57 Year
  Sex: Female

DRUGS (4)
  1. TURMERIC [Concomitant]
     Active Substance: HERBALS\TURMERIC
     Indication: CHOLANGIOCARCINOMA
     Dosage: UNK
     Route: 065
  2. VOTRIENT [Suspect]
     Active Substance: PAZOPANIB HYDROCHLORIDE
     Indication: CHOLANGIOCARCINOMA
     Dosage: 4 DF, QD
     Route: 065
     Dates: start: 20171024
  3. EFA PLUS [Concomitant]
     Indication: PRODUCT USED FOR UNKNOWN INDICATION
  4. AMLODIPINE [Concomitant]
     Active Substance: AMLODIPINE BESYLATE
     Indication: PRODUCT USED FOR UNKNOWN INDICATION
     Dosage: 10 MG, UNK
     Route: 065

REACTIONS (5)
  - Hair colour changes [Not Recovered/Not Resolved]
  - Off label use [Unknown]
  - Blood bilirubin increased [Unknown]
  - Product use in unapproved indication [Unknown]
  - Hypertension [Unknown]

NARRATIVE: CASE EVENT DATE: 20171213
